FAERS Safety Report 20377499 (Version 2)
Quarter: 2022Q1

REPORT INFORMATION
  Report Type: Spontaneous
  Country: ES (occurrence: ES)
  Receive Date: 20220126
  Receipt Date: 20220201
  Transmission Date: 20220423
  Serious: Yes (Hospitalization)
  Sender: FDA-Public Use
  Company Number: ES-002147023-PHHY2019ES106538

PATIENT
  Age: 51 Year
  Sex: Male

DRUGS (20)
  1. TIOTROPIUM [Suspect]
     Active Substance: TIOTROPIUM
     Indication: Asthma
     Route: 065
     Dates: start: 201403
  2. TIOTROPIUM [Suspect]
     Active Substance: TIOTROPIUM
     Indication: Asthma
  3. PREDNISONE [Suspect]
     Active Substance: PREDNISONE
     Indication: Asthma
     Dosage: 10-30 MG, QD
     Route: 048
     Dates: start: 201711
  4. PREDNISONE [Suspect]
     Active Substance: PREDNISONE
     Indication: Asthma
     Route: 048
     Dates: start: 201403
  5. PREDNISONE [Suspect]
     Active Substance: PREDNISONE
     Route: 048
     Dates: start: 201608
  6. PREDNISONE [Suspect]
     Active Substance: PREDNISONE
     Route: 048
     Dates: start: 201503
  7. FORMOTEROL [Suspect]
     Active Substance: FORMOTEROL
     Indication: Asthma
     Dosage: BID 2 DOSAGE FORM (TWO PUFFS (CONTAINING FORMOTEROL/FLUTICASONE PROPIONATE 320 MIGROG/9 MICROG))
     Route: 055
     Dates: start: 201608
  8. FORMOTEROL [Suspect]
     Active Substance: FORMOTEROL
     Indication: Asthma
  9. MONTELUKAST SODIUM [Suspect]
     Active Substance: MONTELUKAST SODIUM
     Indication: Asthma
     Route: 065
     Dates: start: 201403
  10. MONTELUKAST SODIUM [Suspect]
     Active Substance: MONTELUKAST SODIUM
     Indication: Asthma
  11. FLUTICASONE PROPIONATE [Suspect]
     Active Substance: FLUTICASONE PROPIONATE
     Indication: Asthma
     Dosage: (TWO PUFFS (CONTAINING SALMETEROL/FLUTICASONE PROPIONATE 22/250))
     Route: 055
     Dates: start: 201403
  12. FLUTICASONE PROPIONATE [Suspect]
     Active Substance: FLUTICASONE PROPIONATE
     Dosage: 4 DOSAGE FORM TWO PUFFS CONTAINING FORMOTEROL/FLUTICASONE PROPIONATE 320 MIGROG/9 MICROG
     Route: 055
     Dates: start: 201608
  13. OMALIZUMAB [Suspect]
     Active Substance: OMALIZUMAB
     Indication: Asthma
     Route: 065
  14. OMALIZUMAB [Suspect]
     Active Substance: OMALIZUMAB
     Indication: Asthma
  15. LEBRIKIZUMAB [Suspect]
     Active Substance: LEBRIKIZUMAB
     Indication: Asthma
     Route: 065
     Dates: start: 201503, end: 201608
  16. FLUTICASONE PROPIONATE\SALMETEROL XINAFOATE [Suspect]
     Active Substance: FLUTICASONE PROPIONATE\SALMETEROL XINAFOATE
     Indication: Asthma
     Dosage: 2 DOSAGE FORM
     Route: 055
     Dates: start: 201403
  17. FLUTICASONE PROPIONATE\SALMETEROL XINAFOATE [Suspect]
     Active Substance: FLUTICASONE PROPIONATE\SALMETEROL XINAFOATE
     Indication: Asthma
  18. FLUTICASONE [Suspect]
     Active Substance: FLUTICASONE
     Indication: Asthma
     Dosage: 2 DF, BID (TWO PUFFS CONTAINING FORMOTEROL/FLUTICASONE PROPIONATE 320 MIGROG/9 MICROG)
     Route: 055
     Dates: start: 201403
  19. FLUTICASONE [Suspect]
     Active Substance: FLUTICASONE
     Indication: Asthma
  20. METRONIDAZOLE [Concomitant]
     Active Substance: METRONIDAZOLE
     Indication: Blastocystis infection
     Route: 065

REACTIONS (2)
  - Treatment failure [Unknown]
  - Asthma [Unknown]
